FAERS Safety Report 7601780-4 (Version None)
Quarter: 2011Q2

REPORT INFORMATION
  Report Type: 
  Country: None (occurrence: None)
  Receive Date: 20110630
  Receipt Date: 20110614
  Transmission Date: 20111010
  Serious: Yes (Hospitalization)
  Sender: FDA-Public Use
  Company Number: FK201101218

PATIENT
  Age: 83 Year
  Sex: Male

DRUGS (3)
  1. FLUOROURACIL [Suspect]
     Indication: OESOPHAGEAL ADENOCARCINOMA
  2. FOLINIC ACID (FOLINIC ACID) (FOLINIC ACID) [Concomitant]
  3. OXALIPLATIN (OXALIPLATIN) (OXALIPLATIN) [Concomitant]

REACTIONS (4)
  - MYOPERICARDITIS [None]
  - TACHYCARDIA [None]
  - TACHYPNOEA [None]
  - PLEURITIC PAIN [None]
